FAERS Safety Report 8465632-2 (Version None)
Quarter: 2012Q2

REPORT INFORMATION
  Report Type: 
  Country: None (occurrence: None)
  Receive Date: 20120619
  Receipt Date: 20120607
  Transmission Date: 20120825
  Serious: Yes (Hospitalization, Other)
  Sender: FDA-Public Use
  Company Number: ADR-2012-00369

PATIENT
  Age: 6 Year
  Sex: Male
  Weight: 21 kg

DRUGS (1)
  1. BACLOFEN [Suspect]
     Dosage: 140 MCG/DAY, SEE B5

REACTIONS (9)
  - FLUID RETENTION [None]
  - IMPLANT SITE INFECTION [None]
  - CSF CULTURE POSITIVE [None]
  - IMPLANT SITE EFFUSION [None]
  - STAPHYLOCOCCAL INFECTION [None]
  - DEVICE BREAKAGE [None]
  - MEDICAL DEVICE COMPLICATION [None]
  - PRODUCT QUALITY ISSUE [None]
  - MUSCLE SPASTICITY [None]
